FAERS Safety Report 15399535 (Version 1)
Quarter: 2018Q3

REPORT INFORMATION
  Report Type: Report from Study
  Country: US (occurrence: US)
  Receive Date: 20180918
  Receipt Date: 20180918
  Transmission Date: 20181010
  Serious: No
  Sender: FDA-Public Use
  Company Number: US-AMGEN-USASL2018030637

PATIENT
  Age: 61 Year
  Sex: Female

DRUGS (3)
  1. NEUPOGEN [Suspect]
     Active Substance: FILGRASTIM
     Dosage: 300 MUG, DAYS 2, 3, 4, 9, 10, 11, 16, 17, 18 OF EACH 28 DAY CHEMOTHERAPY CYCLE
     Route: 065
  2. NEUPOGEN [Suspect]
     Active Substance: FILGRASTIM
     Indication: PRODUCT USED FOR UNKNOWN INDICATION
     Dosage: 300 MUG, DAYS 2, 3, 4, 9, 10, 11, 16, 17, AND 18 OF EACH 28 DAY CHEMOTHERAPY CYCLE
     Route: 065
  3. NEUPOGEN [Suspect]
     Active Substance: FILGRASTIM
     Dosage: 300 MUG, DAYS 2, 3, 4, 9, 10, 11, 16, 17, 18 OF EACH 28 DAY CHEMOTHERAPY CYCLE
     Route: 065

REACTIONS (3)
  - Adverse event [Unknown]
  - Confusional state [Not Recovered/Not Resolved]
  - Agitation [Not Recovered/Not Resolved]

NARRATIVE: CASE EVENT DATE: 201802
